FAERS Safety Report 12691768 (Version 2)
Quarter: 2017Q1

REPORT INFORMATION
  Report Type: Report from Study
  Country: FR (occurrence: FR)
  Receive Date: 20160826
  Receipt Date: 20170309
  Transmission Date: 20170428
  Serious: Yes (Hospitalization)
  Sender: FDA-Public Use
  Company Number: FR-GILEAD-2016-0229593

PATIENT
  Sex: Female
  Weight: 70 kg

DRUGS (14)
  1. VALIUM [Concomitant]
     Active Substance: DIAZEPAM
     Indication: DEPRESSION
     Dosage: UNK
     Dates: end: 20160728
  2. DULOXETINE. [Concomitant]
     Active Substance: DULOXETINE
     Indication: DEPRESSION
     Dosage: UNK
     Dates: end: 20160728
  3. DULOXETINE. [Concomitant]
     Active Substance: DULOXETINE
     Dosage: UNK
     Dates: start: 20160816
  4. ONBREZ [Concomitant]
     Active Substance: INDACATEROL
     Indication: CHRONIC OBSTRUCTIVE PULMONARY DISEASE
     Dosage: UNK
     Dates: end: 20160728
  5. CREON [Concomitant]
     Active Substance: PANCRELIPASE AMYLASE\PANCRELIPASE LIPASE\PANCRELIPASE PROTEASE
     Indication: PANCREATIC INSUFFICIENCY
     Dosage: UNK
     Dates: end: 20160728
  6. TIORFAN [Concomitant]
     Active Substance: RACECADOTRIL
     Indication: DIARRHOEA
     Dosage: UNK
     Dates: end: 20160728
  7. VALIUM [Concomitant]
     Active Substance: DIAZEPAM
     Dosage: UNK
     Dates: start: 20160816
  8. IMOVANE [Concomitant]
     Active Substance: ZOPICLONE
     Dosage: UNK
     Dates: start: 20160816
  9. LEDIPASVIR/SOFOSBUVIR [Suspect]
     Active Substance: LEDIPASVIR\SOFOSBUVIR
     Indication: HEPATITIS C
     Dosage: 1 DF, QD
     Route: 048
     Dates: start: 20160613, end: 20160808
  10. IMOVANE [Concomitant]
     Active Substance: ZOPICLONE
     Indication: INSOMNIA
     Dosage: UNK
     Dates: end: 20160728
  11. ONBREZ [Concomitant]
     Active Substance: INDACATEROL
     Dosage: UNK
     Dates: start: 20160816
  12. TEMERIT [Concomitant]
     Active Substance: NEBIVOLOL
     Indication: HYPERTENSION
     Dosage: UNK
     Dates: end: 20160728
  13. NALTREXONE [Concomitant]
     Active Substance: NALTREXONE
     Indication: ALCOHOL WITHDRAWAL SYNDROME
     Dosage: UNK
     Dates: start: 201503, end: 20160728
  14. TEMERIT [Concomitant]
     Active Substance: NEBIVOLOL
     Dosage: UNK
     Dates: start: 20160816

REACTIONS (1)
  - Hypomania [Recovered/Resolved]

NARRATIVE: CASE EVENT DATE: 20160728
